FAERS Safety Report 14348969 (Version 2)
Quarter: 2018Q1

REPORT INFORMATION
  Report Type: Spontaneous
  Country: US (occurrence: US)
  Receive Date: 20180104
  Receipt Date: 20180308
  Transmission Date: 20180509
  Serious: No
  Sender: FDA-Public Use
  Company Number: US-ASTRAZENECA-2018SE00081

PATIENT
  Sex: Male
  Weight: 113.4 kg

DRUGS (6)
  1. ALBUTEROL RESCUE INHALER [Concomitant]
     Indication: ASTHMA
     Dosage: AS REQUIRED
     Route: 055
  2. SYMBICORT [Suspect]
     Active Substance: BUDESONIDE\FORMOTEROL FUMARATE DIHYDRATE
     Indication: ASTHMA
     Dosage: 160/4.5MCG, TWO PUFFS TWICE DAILY
     Route: 055
  3. ALBUTEROL RESCUE INHALER [Concomitant]
     Indication: CHRONIC OBSTRUCTIVE PULMONARY DISEASE
     Dosage: AS REQUIRED
     Route: 055
  4. SYMBICORT [Suspect]
     Active Substance: BUDESONIDE\FORMOTEROL FUMARATE DIHYDRATE
     Indication: CHRONIC OBSTRUCTIVE PULMONARY DISEASE
     Dosage: 160/4.5MCG, TWO PUFFS TWICE DAILY
     Route: 055
  5. ALBUTEROL WITH IPRATROPIUM [Concomitant]
     Indication: ASTHMA
     Dosage: THREE TIMES A DAY
     Route: 055
  6. ALBUTEROL WITH IPRATROPIUM [Concomitant]
     Indication: CHRONIC OBSTRUCTIVE PULMONARY DISEASE
     Dosage: THREE TIMES A DAY
     Route: 055

REACTIONS (3)
  - Drug dose omission [Unknown]
  - Visual impairment [Unknown]
  - Device issue [Unknown]
